FAERS Safety Report 5390819-5 (Version None)
Quarter: 2007Q3

REPORT INFORMATION
  Report Type: 
  Country: None (occurrence: None)
  Receive Date: 20070716
  Receipt Date: 20070629
  Transmission Date: 20080115
  Serious: Yes (Death, Hospitalization)
  Sender: FDA-Public Use
  Company Number: DSA_30181_2007

PATIENT
  Sex: Male

DRUGS (12)
  1. TEMESTA (TEMESTA) 2.5 MG (NOT SPECIFIED) [Suspect]
     Dosage: 2.5 MG TID ORAL
     Route: 048
     Dates: end: 20070506
  2. DORMICUM /00036201/ (DORMICUM) 15 MG [Suspect]
     Dosage: 15 MG BID ORAL
     Route: 048
     Dates: end: 20070506
  3. STILNOX /00914901/ (STILNOX) 10 MG [Suspect]
     Dosage: 10 MG QD ORAL
     Route: 048
     Dates: end: 20070506
  4. TRANXILIUM (TRANXILIUM) 20 MG (NOT SPECIFIED) [Suspect]
     Dosage: 20 MG QD ORAL
     Route: 048
     Dates: end: 20070506
  5. ATORVASTATIN CALCIUM [Concomitant]
  6. ACETAMINOPHEN [Concomitant]
  7. NORVASC [Concomitant]
  8. BELOC [Concomitant]
  9. PLAVIX [Concomitant]
  10. TORSEMIDE [Concomitant]
  11. ELTROXIN [Concomitant]
  12. AMISULPRIDE [Concomitant]

REACTIONS (8)
  - ALTERED STATE OF CONSCIOUSNESS [None]
  - CYANOSIS [None]
  - HYPERGLYCAEMIA [None]
  - KETOACIDOSIS [None]
  - PNEUMONIA [None]
  - RENAL FAILURE ACUTE [None]
  - RESPIRATORY DEPRESSION [None]
  - RHABDOMYOLYSIS [None]
